FAERS Safety Report 7560236-8 (Version None)
Quarter: 2011Q2

REPORT INFORMATION
  Report Type: 
  Country: None (occurrence: None)
  Receive Date: 20110617
  Receipt Date: 20110617
  Transmission Date: 20111010
  Serious: Yes (Life-Threatening, Hospitalization)
  Sender: FDA-Public Use
  Company Number: None

PATIENT
  Age: 60 Year
  Sex: Male
  Weight: 171 kg

DRUGS (17)
  1. FLOMAX [Concomitant]
  2. ACIPHEX [Concomitant]
  3. TENORMIN [Concomitant]
  4. SYNTHROID [Concomitant]
  5. IMDUR [Concomitant]
  6. NS [Concomitant]
  7. TRICOR [Concomitant]
  8. ZAROXOLYN [Concomitant]
  9. K-DUR [Concomitant]
  10. PLAVIX [Concomitant]
  11. FOLIC ACID [Concomitant]
  12. ASPIRIN [Concomitant]
  13. INFED [Suspect]
     Indication: HAEMORRHAGIC ANAEMIA
     Dosage: 25MG ONCE IV; 1250MG ONCE IV DRIP
     Route: 042
     Dates: start: 20110615, end: 20110615
  14. LASIX [Concomitant]
  15. VITAMIN B-12 [Concomitant]
  16. LANTUS [Concomitant]
  17. SIMVASTATIN [Concomitant]

REACTIONS (3)
  - INFUSION RELATED REACTION [None]
  - PRURITUS [None]
  - SWOLLEN TONGUE [None]
